FAERS Safety Report 9719097 (Version 2)
Quarter: 2014Q1

REPORT INFORMATION
  Report Type: Report from Study
  Country: IT (occurrence: IT)
  Receive Date: 20131127
  Receipt Date: 20140131
  Transmission Date: 20141002
  Serious: Yes (Life-Threatening)
  Sender: FDA-Public Use
  Company Number: IT-TEVA-447368USA

PATIENT
  Age: 63 Year
  Sex: Female
  Weight: 84 kg

DRUGS (4)
  1. BENDAMUSTINE [Suspect]
     Indication: NON-HODGKIN^S LYMPHOMA
     Dosage: ON DAY -7 AND DAY -6
     Dates: start: 20131016, end: 20131017
  2. ETOPOSIDE [Suspect]
     Indication: NON-HODGKIN^S LYMPHOMA
     Dosage: ETOPOSIDE FROM DAY -5 TO DAY -2
     Dates: start: 20131018, end: 20131021
  3. ARACYTIN [Suspect]
     Indication: NON-HODGKIN^S LYMPHOMA
     Dosage: DAY -5 TO DAY -2
     Dates: start: 20131018, end: 20131021
  4. MELPHALAN [Suspect]
     Indication: NON-HODGKIN^S LYMPHOMA
     Dosage: DAY-1
     Dates: start: 20131022, end: 20131022

REACTIONS (3)
  - Hypernatraemia [Recovered/Resolved]
  - Confusional state [Recovered/Resolved]
  - Tachycardia [Recovered/Resolved]
